FAERS Safety Report 23402140 (Version 2)
Quarter: 2024Q1

REPORT INFORMATION
  Report Type: Spontaneous
  Country: SI (occurrence: SI)
  Receive Date: 20240115
  Receipt Date: 20240221
  Transmission Date: 20240410
  Serious: Yes (Other)
  Sender: FDA-Public Use
  Company Number: SI-BAYER-2023A178637

PATIENT
  Age: 63 Year
  Sex: Male

DRUGS (4)
  1. EYLEA [Suspect]
     Active Substance: AFLIBERCEPT
     Indication: Diabetic retinopathy
     Dosage: UNK, 40 MG/ML
     Dates: start: 2021, end: 2021
  2. EYLEA [Suspect]
     Active Substance: AFLIBERCEPT
     Dosage: UNK, 40 MG/ML
     Dates: start: 20211019, end: 20211019
  3. EYLEA [Suspect]
     Active Substance: AFLIBERCEPT
     Dosage: UNK, 40 MG/ML
     Dates: start: 2022, end: 2022
  4. EYLEA [Suspect]
     Active Substance: AFLIBERCEPT
     Dosage: UNK, 40 MG/ML
     Dates: start: 2023, end: 2023

REACTIONS (4)
  - Retinal neovascularisation [Unknown]
  - Dacryocanaliculitis [Unknown]
  - Conjunctival haemorrhage [Unknown]
  - Eye inflammation [Unknown]
